FAERS Safety Report 5761445-0 (Version None)
Quarter: 2008Q2

REPORT INFORMATION
  Report Type: 
  Country: None (occurrence: None)
  Receive Date: 20080606
  Receipt Date: 20080526
  Transmission Date: 20081010
  Serious: Yes (Other)
  Sender: FDA-Public Use
  Company Number: US-ROCHE-568501

PATIENT
  Sex: Female

DRUGS (5)
  1. PYRIMETHAMINE/SULFADOXINE [Suspect]
     Dosage: TWO DOSES AT LEAST 4 WEEKS APART.
     Route: 065
  2. PYRIMETHAMINE/SULFADOXINE [Suspect]
     Dosage: TWO DOSES AT LEAST 4 WEEKS APART.
     Route: 065
  3. AZITHROMYCIN [Suspect]
     Dosage: FOR 2 DAYS.  TWO DOSES AT LEAST 4 WEEKS APART
     Route: 065
  4. FERROUS SULFATE TAB [Concomitant]
  5. FOLIC ACID [Concomitant]

REACTIONS (1)
  - ABORTION SPONTANEOUS [None]
